FAERS Safety Report 11794194 (Version 1)
Quarter: 2015Q4

REPORT INFORMATION
  Report Type: Spontaneous
  Country: GB (occurrence: GB)
  Receive Date: 20151202
  Receipt Date: 20151202
  Transmission Date: 20160305
  Serious: Yes (Hospitalization)
  Sender: FDA-Public Use
  Company Number: GB-JNJFOC-20150707306

PATIENT
  Sex: Male

DRUGS (1)
  1. SIMPONI [Suspect]
     Active Substance: GOLIMUMAB
     Indication: PRODUCT USED FOR UNKNOWN INDICATION
     Route: 058

REACTIONS (5)
  - Gastric infection [Unknown]
  - Arthritis [Unknown]
  - Localised infection [Recovered/Resolved]
  - Fall [Unknown]
  - Adverse event [Unknown]

NARRATIVE: CASE EVENT DATE: 2015
